FAERS Safety Report 11330468 (Version 1)
Quarter: 2015Q3

REPORT INFORMATION
  Report Type: Spontaneous
  Country: US (occurrence: None)
  Receive Date: 20150730
  Receipt Date: 20150730
  Transmission Date: 20151125
  Serious: Yes (Disabling)
  Sender: FDA-Public Use
  Company Number: None

PATIENT
  Age: 46 Year
  Sex: Female
  Weight: 56.7 kg

DRUGS (3)
  1. AZITHROMYCIN Z-PACK 250 MG [Suspect]
     Active Substance: AZITHROMYCIN DIHYDRATE
     Indication: UPPER-AIRWAY COUGH SYNDROME
     Dosage: 2 PILLS FIRST DAY, THEN 1 DAILY
     Route: 048
     Dates: start: 20150413, end: 20150417
  2. AZITHROMYCIN Z-PACK 250 MG [Suspect]
     Active Substance: AZITHROMYCIN DIHYDRATE
     Indication: COUGH
     Dosage: 2 PILLS FIRST DAY, THEN 1 DAILY
     Route: 048
     Dates: start: 20150413, end: 20150417
  3. FLONASE [Suspect]
     Active Substance: FLUTICASONE PROPIONATE
     Indication: UPPER-AIRWAY COUGH SYNDROME
     Dosage: 2 SPRAYS PER NOSTRIL, SNIFFED INTO NASAL PASSAGES, ONCE DAILY
     Route: 045
     Dates: start: 20150416, end: 20150418

REACTIONS (3)
  - Ageusia [None]
  - Product label issue [None]
  - Anosmia [None]

NARRATIVE: CASE EVENT DATE: 20020420
